FAERS Safety Report 5109396-9 (Version None)
Quarter: 2006Q3

REPORT INFORMATION
  Report Type: 
  Country: None (occurrence: None)
  Receive Date: 20060918
  Receipt Date: 20060903
  Transmission Date: 20061208
  Serious: Yes (Other)
  Sender: FDA-Public Use
  Company Number: 229629

PATIENT
  Sex: Male

DRUGS (1)
  1. AVASTIN [Suspect]
     Indication: RETINOPATHY
     Dosage: INTRAVITREAL

REACTIONS (2)
  - EYE INFLAMMATION [None]
  - FIBRIN ABNORMAL [None]
